FAERS Safety Report 25915413 (Version 2)
Quarter: 2025Q4

REPORT INFORMATION
  Report Type: Report from Study
  Country: EU (occurrence: EU)
  Receive Date: 20251013
  Receipt Date: 20251218
  Transmission Date: 20260117
  Serious: Yes (Hospitalization)
  Sender: ABBVIE
  Company Number: EU-ABBVIE-6102183

PATIENT
  Age: 68 Year
  Sex: Female

DRUGS (3)
  1. FOSCARBIDOPA\FOSLEVODOPA [Suspect]
     Active Substance: FOSCARBIDOPA\FOSLEVODOPA
     Indication: Parkinson^s disease
     Dosage: CR: 0.30 ML/H, CRH: 0,34 ML/H?LAST ADMIN DATE: 2025
     Route: 058
     Dates: start: 20250107
  2. FOSCARBIDOPA\FOSLEVODOPA [Suspect]
     Active Substance: FOSCARBIDOPA\FOSLEVODOPA
     Dosage: DOSAGE: SD: 0.30 ML; CRN: 0.21 ML/H, CR: 0.30 ML/H, CRH: 0.34 ML/H, ED: 0.20 ML
     Route: 058
     Dates: start: 2025, end: 2025
  3. FOSCARBIDOPA\FOSLEVODOPA [Suspect]
     Active Substance: FOSCARBIDOPA\FOSLEVODOPA
     Dosage: DOSAGE: CRN: 0.21 ML/H, CR: 0.28 ML/H, CRH: 0.30 ML/H, ED 0.20 ML. (SD: 0.30 ML)
     Route: 058
     Dates: start: 2025

REACTIONS (17)
  - Dizziness [Recovering/Resolving]
  - Asthenia [Not Recovered/Not Resolved]
  - General physical health deterioration [Unknown]
  - Infusion site induration [Unknown]
  - Tremor [Not Recovered/Not Resolved]
  - On and off phenomenon [Recovering/Resolving]
  - Agitation [Recovering/Resolving]
  - Malaise [Not Recovered/Not Resolved]
  - Blood pressure fluctuation [Recovering/Resolving]
  - Product leakage [Unknown]
  - Palpitations [Recovering/Resolving]
  - Nausea [Not Recovered/Not Resolved]
  - Heart rate increased [Not Recovered/Not Resolved]
  - Hyperkinesia [Recovering/Resolving]
  - Device breakage [Unknown]
  - Infusion site erythema [Recovered/Resolved]
  - Fall [Recovering/Resolving]

NARRATIVE: CASE EVENT DATE: 20250101
